FAERS Safety Report 9390865 (Version 2)
Quarter: 2013Q3

REPORT INFORMATION
  Report Type: Spontaneous
  Country: US (occurrence: None)
  Receive Date: 20130705
  Receipt Date: 20130805
  Transmission Date: 20140515
  Serious: Yes (Other)
  Sender: FDA-Public Use
  Company Number: ACO_37058_2013

PATIENT
  Age: 49 Year
  Sex: Female

DRUGS (6)
  1. AMPYRA [Suspect]
     Indication: PRODUCT USED FOR UNKNOWN INDICATION
     Route: 048
     Dates: start: 20130605
  2. NEURONTIN (GABAPENTIN) [Concomitant]
  3. IMITREX (SUMATRIPTAN SUCCINATE) [Concomitant]
  4. INDERAL LA (PROPRANOLOL HYDROCHLORIDE) LONG-ACTING CAPSULES, 80MG; AKRIMAX ` [Concomitant]
  5. AVONEX (INTERFERON BETA-1A) [Concomitant]
  6. DETROL (TOLTERODINE L-TARTRATE) [Concomitant]

REACTIONS (2)
  - Amnesia [None]
  - Local swelling [None]
